FAERS Safety Report 4574765-2 (Version None)
Quarter: 2005Q1

REPORT INFORMATION
  Report Type: 
  Country: None (occurrence: None)
  Receive Date: 20050208
  Receipt Date: 20040617
  Transmission Date: 20050727
  Serious: No
  Sender: FDA-Public Use
  Company Number: US-GLAXOSMITHKLINE-A0515138A

PATIENT
  Age: 66 Year
  Sex: Male

DRUGS (2)
  1. PAXIL CR [Suspect]
     Indication: DEPRESSION
     Dosage: 12.5MG PER DAY
     Route: 048
     Dates: start: 20040501, end: 20040613
  2. ACE INHIBITOR [Concomitant]

REACTIONS (3)
  - COUGH [None]
  - HEADACHE [None]
  - THINKING ABNORMAL [None]
